FAERS Safety Report 7966283-6 (Version None)
Quarter: 2011Q4

REPORT INFORMATION
  Report Type: 
  Country: None (occurrence: None)
  Receive Date: 20111208
  Receipt Date: 20111206
  Transmission Date: 20120403
  Serious: Yes (Death, Hospitalization)
  Sender: FDA-Public Use
  Company Number: PHFR2011GB006694

PATIENT
  Sex: Male

DRUGS (5)
  1. MORPHINE [Concomitant]
     Route: 048
  2. ORAMORPH SR [Concomitant]
  3. GABAPENTIN [Concomitant]
  4. ZOLEDRONIC ACID [Suspect]
     Dosage: QMO
     Route: 042
     Dates: start: 20110509, end: 20110531
  5. AFINITOR [Suspect]
     Dosage: 10 MG, UNK
     Route: 048
     Dates: start: 20110509, end: 20110607

REACTIONS (7)
  - METASTASES TO LIVER [None]
  - NEOPLASM MALIGNANT [None]
  - TOXICITY TO VARIOUS AGENTS [None]
  - RENAL FAILURE ACUTE [None]
  - RENAL IMPAIRMENT [None]
  - NEOPLASM PROGRESSION [None]
  - METASTASES TO BONE [None]
